FAERS Safety Report 7926723-5 (Version None)
Quarter: 2011Q4

REPORT INFORMATION
  Report Type: 
  Country: None (occurrence: None)
  Receive Date: 20111118
  Receipt Date: 20111108
  Transmission Date: 20120403
  Serious: Yes (Hospitalization)
  Sender: FDA-Public Use
  Company Number: US-JNJFOC-20111103375

PATIENT
  Sex: Female

DRUGS (6)
  1. CELEBREX [Concomitant]
     Dosage: SQ
     Route: 065
  2. FOLIC ACID [Concomitant]
     Dosage: SQ
     Route: 065
  3. PAXIL [Concomitant]
     Dosage: SQ
     Route: 065
  4. METHOTREXATE [Concomitant]
     Dosage: SQ
     Route: 065
  5. FOSAMAX [Concomitant]
     Dosage: SQ
     Route: 065
  6. REMICADE [Suspect]
     Indication: RHEUMATOID ARTHRITIS
     Dosage: THE PATIENT WAS RECEIVING INFLIXIMAB EVERY 6-7 WEEKS
     Route: 042
     Dates: start: 20000101

REACTIONS (1)
  - CEREBROVASCULAR ACCIDENT [None]
